FAERS Safety Report 4747760-8 (Version None)
Quarter: 2005Q3

REPORT INFORMATION
  Report Type: 
  Country: None (occurrence: None)
  Receive Date: 20050816
  Receipt Date: 20050808
  Transmission Date: 20060218
  Serious: Yes (Death)
  Sender: FDA-Public Use
  Company Number: 050808-0000685

PATIENT
  Age: 36 Year
  Sex: Female

DRUGS (7)
  1. TRANXENE [Suspect]
     Dosage: 50 MG;QD;IM
     Route: 030
     Dates: start: 20050629, end: 20050629
  2. NUCTALON (ESTAZOLAM) [Suspect]
     Indication: INSOMNIA
     Dosage: 2.0 MG;QD;PO
     Route: 048
     Dates: start: 20050523, end: 20050629
  3. CYAMEMAZINE (CYAMEMAZINE) [Suspect]
     Dosage: 25.0 MG;QD;PO
     Route: 048
     Dates: start: 20050614, end: 20050629
  4. MIANSERIN HYDROCHLORIDE (MIANSERIN HYDROCHLORIDE) [Suspect]
     Dosage: 45.0 MG;QD;PO
     Route: 048
     Dates: start: 20050616, end: 20050629
  5. OXAZEPAM [Suspect]
     Dosage: 75.0 MG;QD;PO
     Route: 048
     Dates: start: 20050530, end: 20050629
  6. PAROXETINE HCL [Suspect]
     Dosage: 20.0 MG;QD;PO
     Route: 048
     Dates: start: 20050612, end: 20050629
  7. ACETAMINOPHEN W/ PROPOXYPHENE HCL [Concomitant]

REACTIONS (3)
  - CRYING [None]
  - RHINORRHOEA [None]
  - SUDDEN DEATH [None]
